FAERS Safety Report 12147961 (Version 2)
Quarter: 2016Q1

REPORT INFORMATION
  Report Type: Spontaneous
  Country: FR (occurrence: FR)
  Receive Date: 20160304
  Receipt Date: 20160304
  Transmission Date: 20160526
  Serious: Yes (Other)
  Sender: FDA-Public Use
  Company Number: FR-KADMON PHARMACEUTICALS, LLC-KAD201308-001003

PATIENT
  Age: 35 Year
  Sex: Male

DRUGS (5)
  1. TENOFOVIR [Concomitant]
     Active Substance: TENOFOVIR
     Dates: start: 200911
  2. PEGYLATED INTERFERON ALFA-2A [Suspect]
     Active Substance: PEGINTERFERON ALFA-2A
     Indication: HEPATITIS C
     Dates: start: 20100408
  3. EMTRICITABINE [Concomitant]
     Active Substance: EMTRICITABINE
     Dates: start: 200911
  4. RIBAVIRIN. [Suspect]
     Active Substance: RIBAVIRIN
     Indication: HEPATITIS C
     Dates: start: 20100408
  5. ATAZANAVIR [Concomitant]
     Active Substance: ATAZANAVIR
     Dates: start: 200911

REACTIONS (1)
  - Ophthalmoplegia [Recovered/Resolved]

NARRATIVE: CASE EVENT DATE: 20100424
